FAERS Safety Report 24721068 (Version 1)
Quarter: 2024Q4

REPORT INFORMATION
  Report Type: Spontaneous
  Country: AU (occurrence: AU)
  Receive Date: 20241211
  Receipt Date: 20241211
  Transmission Date: 20250115
  Serious: Yes (Other)
  Sender: Steriscience PTE
  Company Number: AU-MLMSERVICE-20210824-3068486-2

PATIENT
  Age: 63 Year
  Sex: Male

DRUGS (2)
  1. VANCOMYCIN [Suspect]
     Active Substance: VANCOMYCIN
     Indication: Cellulitis
     Dosage: UNK
     Route: 042
     Dates: start: 20191118, end: 20191127
  2. MEROPENEM [Suspect]
     Active Substance: MEROPENEM
     Indication: Cellulitis
     Dosage: UNK
     Route: 042
     Dates: start: 20191118, end: 20191127

REACTIONS (3)
  - Hepatitis [None]
  - Periorbital oedema [None]
  - Drug reaction with eosinophilia and systemic symptoms [None]

NARRATIVE: CASE EVENT DATE: 20191125
